FAERS Safety Report 7720194-X (Version None)
Quarter: 2011Q3

REPORT INFORMATION
  Report Type: 
  Country: None (occurrence: None)
  Receive Date: 20110831
  Receipt Date: 20110822
  Transmission Date: 20111222
  Serious: Yes (Hospitalization)
  Sender: FDA-Public Use
  Company Number: US-US-EMD SERONO, INC.-7078914

PATIENT
  Sex: Female

DRUGS (10)
  1. MAGNESIUM [Concomitant]
  2. TIZANIDINE HCL [Concomitant]
     Indication: MUSCLE SPASMS
  3. THYROID MEDICATION [Concomitant]
  4. LYRICA [Suspect]
  5. CALCIUM CARBONATE [Concomitant]
  6. FENTANYL-100 [Concomitant]
     Indication: PAIN
  7. AMBIEN [Concomitant]
     Indication: SLEEP DISORDER
  8. REBIF [Suspect]
     Indication: PRODUCT USED FOR UNKNOWN INDICATION
     Route: 058
     Dates: start: 20110523, end: 20110725
  9. POTASIUM [Concomitant]
  10. ADDERALL 5 [Concomitant]
     Indication: FATIGUE

REACTIONS (4)
  - GAIT DISTURBANCE [None]
  - FATIGUE [None]
  - RENAL FAILURE [None]
  - GASTRIC ULCER HAEMORRHAGE [None]
